FAERS Safety Report 22235331 (Version 1)
Quarter: 2023Q2

REPORT INFORMATION
  Report Type: Spontaneous
  Country: KR (occurrence: KR)
  Receive Date: 20230420
  Receipt Date: 20230420
  Transmission Date: 20230722
  Serious: Yes (Hospitalization, Other)
  Sender: FDA-Public Use
  Company Number: KR-MYLANLABS-2023M1038189

PATIENT
  Age: 82 Year
  Sex: Male
  Weight: 63 kg

DRUGS (4)
  1. CELEBREX [Suspect]
     Active Substance: CELECOXIB
     Indication: Product used for unknown indication
     Dosage: 200 MILLIGRAM, BID
     Route: 048
     Dates: start: 20190617
  2. FAMCICLOVIR [Concomitant]
     Active Substance: FAMCICLOVIR
     Dosage: 3 DOSAGE FORM
     Route: 065
     Dates: start: 20190617
  3. REBAMIPIDE [Concomitant]
     Active Substance: REBAMIPIDE
     Dosage: 3 DOSAGE FORM, TID, 0.33 DAYS
     Route: 065
     Dates: start: 20190617
  4. OXYCODONE HYDROCHLORIDE [Concomitant]
     Active Substance: OXYCODONE HYDROCHLORIDE
     Dosage: 3 DOSAGE FORM
     Route: 065
     Dates: start: 20190617, end: 20190619

REACTIONS (9)
  - Sweat gland disorder [Unknown]
  - Haemoptysis [Unknown]
  - Lipase increased [Unknown]
  - Nausea [Unknown]
  - Vomiting [Unknown]
  - Chest pain [Unknown]
  - Hypertension [Unknown]
  - Dizziness [Not Recovered/Not Resolved]
  - Dyspepsia [Unknown]

NARRATIVE: CASE EVENT DATE: 20190619
